FAERS Safety Report 4848877-X (Version None)
Quarter: 2005Q4

REPORT INFORMATION
  Report Type: 
  Country: None (occurrence: None)
  Receive Date: 20051208
  Receipt Date: 20050908
  Transmission Date: 20060501
  Serious: Yes (Hospitalization, Disabling)
  Sender: FDA-Public Use
  Company Number: US-MERCK-0509USA01046

PATIENT
  Age: 57 Year
  Sex: Female
  Weight: 86 kg

DRUGS (4)
  1. VIOXX [Suspect]
     Indication: OSTEOARTHRITIS
     Route: 048
     Dates: start: 20020930, end: 20040828
  2. PREVACID [Concomitant]
     Indication: GASTRIC DISORDER
     Route: 065
  3. ZOCOR [Concomitant]
     Indication: BLOOD CHOLESTEROL INCREASED
     Route: 048
     Dates: start: 20020101
  4. METOCLOPRAMIDE [Concomitant]
     Indication: GASTRIC DISORDER
     Route: 065

REACTIONS (3)
  - CONVULSION [None]
  - DEEP VEIN THROMBOSIS [None]
  - MIGRAINE [None]
